FAERS Safety Report 9646337 (Version 3)
Quarter: 2014Q1

REPORT INFORMATION
  Report Type: Spontaneous
  Country: US (occurrence: US)
  Receive Date: 20131025
  Receipt Date: 20140321
  Transmission Date: 20141002
  Serious: Yes (Hospitalization)
  Sender: FDA-Public Use
  Company Number: US-B.I. PHARMACEUTICALS,INC./RIDGEFIELD-2013-BI-33698BP

PATIENT
  Sex: Male
  Weight: 70.31 kg

DRUGS (10)
  1. PRADAXA [Suspect]
     Indication: ATRIAL FIBRILLATION
     Dosage: 300 MG
     Route: 048
     Dates: start: 20110720, end: 201201
  2. PRADAXA [Suspect]
     Indication: ANTICOAGULANT THERAPY
  3. CARVIEDILOL [Concomitant]
     Dosage: 12.5 MG
     Route: 048
     Dates: start: 2004
  4. GLIPIZIDE [Concomitant]
     Dosage: 2.5 MG
     Route: 065
     Dates: start: 20060817
  5. PRAVASTATIN [Concomitant]
     Dosage: 40 MG
     Route: 048
     Dates: start: 20060817
  6. FUROSEMIDE [Concomitant]
     Route: 065
     Dates: start: 2009
  7. ALLOPURINOL [Concomitant]
     Dosage: 100 MG
     Route: 065
  8. ASPIRIN [Concomitant]
     Dosage: 81 MG
     Route: 048
  9. DIGOXIN [Concomitant]
     Dosage: 0.25 MG
     Route: 048
  10. NITROGLYCERIN [Concomitant]
     Route: 060

REACTIONS (5)
  - Gastrointestinal haemorrhage [Unknown]
  - Iron deficiency anaemia [Unknown]
  - Coagulopathy [Unknown]
  - Renal failure acute [Unknown]
  - Peptic ulcer [Unknown]
